FAERS Safety Report 8761182 (Version 2)
Quarter: 2013Q1

REPORT INFORMATION
  Report Type: Spontaneous
  Country: GB (occurrence: GB)
  Receive Date: 20120830
  Receipt Date: 20130111
  Transmission Date: 20140127
  Serious: Yes (Hospitalization, Other)
  Sender: FDA-Public Use
  Company Number: PHFR2012GB004683

PATIENT
  Sex: Male

DRUGS (2)
  1. CLOZARIL [Suspect]
     Dosage: UNK UKN, UNK
  2. OLANZAPINE [Concomitant]
     Dosage: UNK UKN, UNK

REACTIONS (6)
  - Malaise [Unknown]
  - Dyspnoea [Recovering/Resolving]
  - Psychotic disorder [Recovering/Resolving]
  - Aggression [Unknown]
  - Anxiety [Recovered/Resolved]
  - Panic disorder [Recovered/Resolved]
